FAERS Safety Report 4613198-7 (Version None)
Quarter: 2005Q1

REPORT INFORMATION
  Report Type: 
  Country: None (occurrence: None)
  Receive Date: 20050315
  Receipt Date: 20050303
  Transmission Date: 20050727
  Serious: Yes (Life-Threatening, Hospitalization)
  Sender: FDA-Public Use
  Company Number: 2005040311

PATIENT
  Age: 48 Year
  Sex: Male
  Weight: 90 kg

DRUGS (1)
  1. BEXTRA [Suspect]
     Indication: BACK PAIN
     Dosage: 400 MG (1 D), ORAL
     Route: 048
     Dates: start: 20030201, end: 20041101

REACTIONS (2)
  - LARGE INTESTINAL ULCER [None]
  - LARGE INTESTINE PERFORATION [None]
